FAERS Safety Report 10916387 (Version 1)
Quarter: 2015Q1

REPORT INFORMATION
  Report Type: Other
  Country: US (occurrence: US)
  Receive Date: 20150316
  Receipt Date: 20150316
  Transmission Date: 20150721
  Serious: Yes (Other)
  Sender: FDA-Public Use
  Company Number: US-SHIRE-US201501917

PATIENT
  Age: 59 Year
  Sex: Female

DRUGS (1)
  1. VPRIV [Suspect]
     Active Substance: VELAGLUCERASE ALFA
     Indication: GAUCHER^S DISEASE
     Dosage: 4000 IU (10 VIALS), OTHER (BIMONTHLY)
     Route: 041
     Dates: start: 20130620

REACTIONS (4)
  - Hypoaesthesia [Unknown]
  - Product quality issue [Unknown]
  - Infusion related reaction [Unknown]
  - Photopsia [Unknown]

NARRATIVE: CASE EVENT DATE: 20150302
